FAERS Safety Report 4655069-6 (Version None)
Quarter: 2005Q2

REPORT INFORMATION
  Report Type: 
  Country: None (occurrence: None)
  Receive Date: 20050503
  Receipt Date: 20050425
  Transmission Date: 20051028
  Serious: Yes (Life-Threatening)
  Sender: FDA-Public Use
  Company Number: 2005CG00625

PATIENT
  Age: 65 Year
  Sex: Female

DRUGS (7)
  1. NEXIUM [Suspect]
     Dosage: 80 MG DAILY PO
     Route: 048
     Dates: end: 20040626
  2. CORDARONE [Suspect]
     Dates: end: 20040626
  3. ALPRESS LP [Suspect]
     Dosage: 5 MG DAILY PO
     Route: 048
     Dates: end: 20040626
  4. LEVOTHYROX [Suspect]
     Dosage: 150 UG DAILY PO
     Route: 048
     Dates: end: 20040626
  5. SOPROL [Suspect]
     Dosage: 10 MG DAILY PO
     Route: 048
     Dates: end: 20040626
  6. ATARAX [Suspect]
     Dosage: 25 MG DAILY PO
     Route: 048
     Dates: end: 20040626
  7. SODIUM CHLORIDE [Suspect]
     Dates: end: 20040626

REACTIONS (5)
  - CARDIO-RESPIRATORY ARREST [None]
  - DIALYSIS [None]
  - HYPERKALAEMIA [None]
  - RENAL FAILURE ACUTE [None]
  - URINARY TRACT OBSTRUCTION [None]
